FAERS Safety Report 9043378 (Version 2)
Quarter: 2013Q3

REPORT INFORMATION
  Report Type: Spontaneous
  Country: US (occurrence: US)
  Receive Date: 20130129
  Receipt Date: 20130809
  Transmission Date: 20140515
  Serious: No
  Sender: FDA-Public Use
  Company Number: US-B.I. PHARMACEUTICALS,INC./RIDGEFIELD-2013-BI-02272BP

PATIENT
  Sex: Female
  Weight: 65.77 kg

DRUGS (4)
  1. SPIRIVA [Suspect]
     Indication: CHRONIC OBSTRUCTIVE PULMONARY DISEASE
  2. PRADAXA [Concomitant]
     Indication: ATRIAL FIBRILLATION
  3. DILTIAZEM [Concomitant]
     Indication: HYPERTENSION
  4. SIMVASTATIN [Concomitant]

REACTIONS (1)
  - Cataract operation [Unknown]
